FAERS Safety Report 16964297 (Version 1)
Quarter: 2019Q4

REPORT INFORMATION
  Report Type: Spontaneous
  Country: US (occurrence: US)
  Receive Date: 20191027
  Receipt Date: 20191027
  Transmission Date: 20200122
  Serious: Yes (Life-Threatening, Disabling)
  Sender: FDA-Public Use
  Company Number: None

PATIENT
  Age: 36 Year
  Sex: Female
  Weight: 91.35 kg

DRUGS (20)
  1. B12 SHOTS [Concomitant]
     Active Substance: CYANOCOBALAMIN
  2. CRESTOR [Concomitant]
     Active Substance: ROSUVASTATIN CALCIUM
  3. DURAGESIC [Suspect]
     Active Substance: FENTANYL
     Indication: BREAST PAIN
     Dosage: ?          OTHER STRENGTH:MCG;QUANTITY:1 PATCH(ES);?
     Route: 062
  4. VIT D [Concomitant]
     Active Substance: VITAMIN D NOS
  5. DHEA [Concomitant]
     Active Substance: PRASTERONE
  6. DURAGESIC [Suspect]
     Active Substance: FENTANYL
     Indication: PAIN
     Dosage: ?          OTHER STRENGTH:MCG;QUANTITY:1 PATCH(ES);?
     Route: 062
  7. GABAPENTIN. [Concomitant]
     Active Substance: GABAPENTIN
  8. VYVANSE [Concomitant]
     Active Substance: LISDEXAMFETAMINE DIMESYLATE
  9. HYDROCORTISONE. [Concomitant]
     Active Substance: HYDROCORTISONE
  10. VIT D 50000 IU [Concomitant]
  11. XIFAXAN [Concomitant]
     Active Substance: RIFAXIMIN
  12. ULORIC [Concomitant]
     Active Substance: FEBUXOSTAT
  13. DURAGESIC [Suspect]
     Active Substance: FENTANYL
     Indication: FIBROMYALGIA
     Dosage: ?          OTHER STRENGTH:MCG;QUANTITY:1 PATCH(ES);?
     Route: 062
  14. CEVIMELINE. [Concomitant]
     Active Substance: CEVIMELINE
  15. SYNTHROID [Concomitant]
     Active Substance: LEVOTHYROXINE SODIUM
  16. FLUDROCORTISONE [Concomitant]
     Active Substance: FLUDROCORTISONE
  17. SOLU-CORTEF [Concomitant]
     Active Substance: HYDROCORTISONE SODIUM SUCCINATE
  18. PRILOSEC [Concomitant]
     Active Substance: OMEPRAZOLE MAGNESIUM
  19. DURAGESIC [Concomitant]
     Active Substance: FENTANYL
  20. PERCOCET [Concomitant]
     Active Substance: ACETAMINOPHEN\OXYCODONE HYDROCHLORIDE

REACTIONS (1)
  - Adrenal insufficiency [None]

NARRATIVE: CASE EVENT DATE: 20110901
